FAERS Safety Report 7399544-2 (Version None)
Quarter: 2011Q1

REPORT INFORMATION
  Report Type: 
  Country: None (occurrence: None)
  Receive Date: 20110328
  Receipt Date: 20110323
  Transmission Date: 20110831
  Serious: Yes (Other)
  Sender: FDA-Public Use
  Company Number: B0708175A

PATIENT
  Age: 54 Year
  Sex: Female

DRUGS (3)
  1. PROPRANOLOL HCL [Suspect]
     Indication: SUPRAVENTRICULAR TACHYCARDIA
     Dosage: 20 MG/ ORAL
     Route: 048
  2. RIBAVIRIN [Concomitant]
  3. PEGINTERFERON ALFA-2B [Concomitant]

REACTIONS (3)
  - TREATMENT FAILURE [None]
  - RASH PRURITIC [None]
  - ANGIOEDEMA [None]
